FAERS Safety Report 4717331-8 (Version None)
Quarter: 2005Q3

REPORT INFORMATION
  Report Type: 
  Country: None (occurrence: None)
  Receive Date: 20050712
  Receipt Date: 20040524
  Transmission Date: 20060218
  Serious: Yes (Hospitalization)
  Sender: FDA-Public Use
  Company Number: HQWYE104325MAY04

PATIENT
  Age: 76 Year
  Sex: Female

DRUGS (9)
  1. MYLOTARG [Suspect]
     Indication: ACUTE MYELOID LEUKAEMIA
     Dosage: 0.9 MG/M^2 1X PER 1 DAY, INTRAVENOUS
     Route: 042
     Dates: start: 20040512, end: 20040512
  2. ALLOPURINOL [Concomitant]
  3. ZOLOFT [Concomitant]
  4. ZESTRIL [Concomitant]
  5. ALLEGRA [Concomitant]
  6. MEGACE [Concomitant]
  7. BENADRYL [Concomitant]
  8. TYLENOL (PARACETAMOL) [Concomitant]
  9. DULCOLAX [Concomitant]

REACTIONS (1)
  - WHITE BLOOD CELL COUNT DECREASED [None]
